FAERS Safety Report 4984863-7 (Version None)
Quarter: 2006Q2

REPORT INFORMATION
  Report Type: 
  Country: None (occurrence: None)
  Receive Date: 20060426
  Receipt Date: 20060426
  Transmission Date: 20061013
  Serious: No
  Sender: FDA-Public Use
  Company Number: None

PATIENT
  Sex: Female

DRUGS (1)
  1. OMNIPAQUE 140 [Suspect]
     Indication: COMPUTERISED TOMOGRAM
     Dates: start: 20060330, end: 20060330

REACTIONS (1)
  - PRURITUS [None]
